FAERS Safety Report 16595823 (Version 1)
Quarter: 2019Q3

REPORT INFORMATION
  Report Type: Spontaneous
  Country: DE (occurrence: DE)
  Receive Date: 20190719
  Receipt Date: 20190719
  Transmission Date: 20191004
  Serious: Yes (Hospitalization)
  Sender: FDA-Public Use
  Company Number: DE-TEVA-2019-DE-1077960

PATIENT
  Age: 43 Year
  Sex: Female
  Weight: 57.3 kg

DRUGS (14)
  1. RAMIPRIL. [Concomitant]
     Active Substance: RAMIPRIL
     Dosage: 2.5 MG, 0.5-0-0-0, TABLET
     Route: 048
  2. DARBEPOETIN ALFA [Concomitant]
     Active Substance: DARBEPOETIN ALFA
     Dosage: 60 MICROGRAMS, 1X/WEEK, SOLUTION FOR INJECTION/INFUSION
     Route: 058
  3. CALCITRIOL. [Concomitant]
     Active Substance: CALCITRIOL
     Dosage: 0.5 MICROGRAMS, 1-0-1-0, CAPSULES
     Route: 048
  4. HERZASS-RATIOPHARM 100MG [Suspect]
     Active Substance: ASPIRIN
     Dosage: 100 MG, 1-0-0-0, TABLET
     Route: 048
  5. VIGANTOLETTEN 1000I.E. [Concomitant]
     Active Substance: CHOLECALCIFEROL
     Dosage: 1000 IE, 1-0-1-0, TABLET
     Route: 048
  6. BICANORM [Concomitant]
     Active Substance: SODIUM BICARBONATE
     Dosage: 1000 MG, 1-0-1-0, TABLET
     Route: 048
  7. LEVOTHYROXIN-NATRIUM [Concomitant]
     Active Substance: LEVOTHYROXINE SODIUM
     Dosage: 50 MICROGRAMS, 1-0-0-0, TABLETS
     Route: 048
  8. METAMIZOL [Concomitant]
     Active Substance: METAMIZOLE SODIUM
     Dosage: 500 MG, IF NECESSARY 4X/DAY, TABLETS
     Route: 048
  9. LIPROLOG 100EINHEITEN/ML [Concomitant]
     Dosage: 100 IU, VIA INSULIN PUMP, SOLUTION FOR INJECTION/INFUSION
     Route: 058
  10. AZATHIOPRINE. [Suspect]
     Active Substance: AZATHIOPRINE
     Dosage: 50 MG, 2-0-0-0, TABLET
     Route: 048
  11. PREDNISOLON [Suspect]
     Active Substance: PREDNISOLONE
     Dosage: 5 MG, 2-0-0-0, TABLET
     Route: 048
  12. PROGRAF [Suspect]
     Active Substance: TACROLIMUS\TACROLIMUS ANHYDROUS
     Dosage: MG, 3-0-3-0, CAPSULES
     Route: 048
  13. CALCIUM [Concomitant]
     Active Substance: CALCIUM
     Dosage: 500 MG, 1-0-0-0, CAPSULES
     Route: 048
  14. PANTOPRAZOL [Concomitant]
     Active Substance: PANTOPRAZOLE SODIUM
     Dosage: 40 MG, 0-0-1-0, TABLET
     Route: 048

REACTIONS (1)
  - Anaemia [Unknown]

NARRATIVE: CASE EVENT DATE: 20180117
